FAERS Safety Report 5332611-3 (Version None)
Quarter: 2007Q2

REPORT INFORMATION
  Report Type: 
  Country: None (occurrence: None)
  Receive Date: 20070523
  Receipt Date: 20070514
  Transmission Date: 20071010
  Serious: Yes (Other)
  Sender: FDA-Public Use
  Company Number: ES-AMGEN-UK224926

PATIENT
  Age: 43 Year
  Sex: Male
  Weight: 64 kg

DRUGS (9)
  1. ARANESP [Suspect]
     Indication: DIALYSIS
     Route: 058
     Dates: start: 20061127, end: 20070507
  2. EPOETIN ALFA [Suspect]
     Route: 042
     Dates: start: 20060621, end: 20061117
  3. CALCIUM CHLORIDE [Concomitant]
     Route: 048
     Dates: start: 20060621
  4. RENAGEL [Concomitant]
     Route: 048
     Dates: start: 20061201
  5. CARVEDILOL [Concomitant]
     Route: 048
     Dates: start: 20061201
  6. ADALAT [Concomitant]
     Route: 048
     Dates: start: 20061117
  7. BECOZYME [Concomitant]
     Route: 048
     Dates: start: 20061117
  8. PREDNISONE TAB [Concomitant]
     Route: 065
  9. CYCLOSPORINE [Concomitant]
     Route: 065
     Dates: start: 20070511

REACTIONS (1)
  - APLASIA PURE RED CELL [None]
